FAERS Safety Report 6120618-8 (Version None)
Quarter: 2009Q1

REPORT INFORMATION
  Report Type: 
  Country: None (occurrence: None)
  Receive Date: 20090312
  Receipt Date: 20090312
  Transmission Date: 20090719
  Serious: Yes (Hospitalization)
  Sender: FDA-Public Use
  Company Number: None

PATIENT
  Sex: Female
  Weight: 63.5036 kg

DRUGS (4)
  1. RITUXAN [Suspect]
     Indication: LYMPHOMA
     Dosage: 645MG EVERY 2 WEEKS IVPB
     Dates: start: 20090225
  2. CYTOXAN [Suspect]
     Indication: LYMPHOMA
     Dosage: 1290MG EVERY 2 WEEKS IVPB
     Dates: start: 20090226
  3. ADRIAMYCIN RDF [Suspect]
     Indication: LYMPHOMA
     Dosage: 86 MG EVERY 2 WEEKS IVPB
     Dates: start: 20090225
  4. ONCOVIN [Suspect]
     Indication: LYMPHOMA
     Dosage: 2.0 MG EVERY 2 WEEKS IVPB
     Dates: start: 20090226

REACTIONS (16)
  - ANOREXIA [None]
  - BLOOD PRESSURE SYSTOLIC INSPIRATORY DECREASED [None]
  - CARDIAC TAMPONADE [None]
  - CATHETER RELATED COMPLICATION [None]
  - CHEST PAIN [None]
  - DEEP VEIN THROMBOSIS [None]
  - DYSPNOEA [None]
  - ELECTROCARDIOGRAM LOW VOLTAGE [None]
  - FATIGUE [None]
  - HYPOPHAGIA [None]
  - MYALGIA [None]
  - NEUTROPENIA [None]
  - PERICARDIAL EFFUSION [None]
  - PLEURAL EFFUSION [None]
  - PYREXIA [None]
  - SUPERIOR VENA CAVAL OCCLUSION [None]
